FAERS Safety Report 8860550 (Version 2)
Quarter: 2012Q4

REPORT INFORMATION
  Report Type: 
  Country: GB (occurrence: GB)
  Receive Date: 20121025
  Receipt Date: 20121101
  Transmission Date: 20130627
  Serious: Yes (Hospitalization)
  Sender: FDA-Public Use
  Company Number: GB-PFIZER INC-2012261651

PATIENT
  Age: 54 Year
  Sex: Male

DRUGS (5)
  1. SUNITINIB MALATE [Suspect]
     Indication: TRANSITIONAL CELL CARCINOMA
     Dosage: 25 mg, UNK
     Dates: start: 20120403
  2. CISPLATIN [Suspect]
     Indication: TRANSITIONAL CELL CARCINOMA
     Dosage: 140 mg, UNK
     Route: 042
     Dates: start: 20120424
  3. GEMCITABINE [Suspect]
     Indication: TRANSITIONAL CELL CARCINOMA
     Dosage: 2 g, UNK
     Route: 042
     Dates: start: 20120424
  4. ZOMORPH [Concomitant]
     Dosage: 60 mg, 2x/day
     Route: 048
     Dates: start: 20120403
  5. LANSOPRAZOLE [Concomitant]
     Dosage: 30 mg, 1x/day
     Route: 048
     Dates: start: 20120417

REACTIONS (15)
  - Lower respiratory tract infection [Recovered/Resolved]
  - Body temperature increased [Recovered/Resolved]
  - Vomiting [Recovered/Resolved]
  - Diarrhoea [Recovered/Resolved]
  - Blood urea increased [None]
  - Blood creatinine increased [None]
  - Gamma-glutamyltransferase increased [None]
  - Blood chloride decreased [None]
  - Alanine aminotransferase increased [None]
  - Blood glucose increased [None]
  - Blood alkaline phosphatase increased [None]
  - Blood albumin decreased [None]
  - Blood sodium decreased [None]
  - Blood calcium decreased [None]
  - Blood lactate dehydrogenase increased [None]
